FAERS Safety Report 6701121-0 (Version None)
Quarter: 2010Q2

REPORT INFORMATION
  Report Type: 
  Country: None (occurrence: None)
  Receive Date: 20100428
  Receipt Date: 20100428
  Transmission Date: 20101027
  Serious: Yes (Hospitalization)
  Sender: FDA-Public Use
  Company Number: None

PATIENT
  Sex: Female
  Weight: 54.4316 kg

DRUGS (12)
  1. MULTAQ [Suspect]
     Indication: ATRIAL FIBRILLATION
     Dosage: 400 MG BID PO
     Route: 048
     Dates: start: 20100406, end: 20100423
  2. LASIX [Concomitant]
  3. KLOR-CON [Concomitant]
  4. MEGACE [Concomitant]
  5. AZITHROMYCIN [Concomitant]
  6. LEVOXYL [Concomitant]
  7. COZAAR [Concomitant]
  8. ZOCOR [Concomitant]
  9. AMLODIPINE [Concomitant]
  10. ATENOLOL [Concomitant]
  11. ATIVAN [Concomitant]
  12. COMBIVENT [Concomitant]

REACTIONS (7)
  - ABDOMINAL DISCOMFORT [None]
  - DECREASED APPETITE [None]
  - DEHYDRATION [None]
  - HYPONATRAEMIA [None]
  - NAUSEA [None]
  - RENAL FAILURE CHRONIC [None]
  - VOMITING [None]
